FAERS Safety Report 4863724-8 (Version None)
Quarter: 2005Q4

REPORT INFORMATION
  Report Type: 
  Country: None (occurrence: None)
  Receive Date: 20051222
  Receipt Date: 20051115
  Transmission Date: 20060501
  Serious: No
  Sender: FDA-Public Use
  Company Number: US-GLAXOSMITHKLINE-A0582408A

PATIENT
  Age: 65 Year
  Sex: Female

DRUGS (5)
  1. FLOVENT [Suspect]
     Indication: ASTHMA
     Dosage: 2PUFF TWICE PER DAY
     Route: 055
     Dates: start: 20051107
  2. LEXAPRO [Concomitant]
  3. NORVASC [Concomitant]
  4. TRIAMTERENE [Concomitant]
     Route: 065
  5. ALBUTEROL [Concomitant]

REACTIONS (1)
  - COUGH [None]
